FAERS Safety Report 7353450-8 (Version None)
Quarter: 2011Q1

REPORT INFORMATION
  Report Type: 
  Country: None (occurrence: None)
  Receive Date: 20110304
  Receipt Date: 20110217
  Transmission Date: 20110831
  Serious: Yes (Other)
  Sender: FDA-Public Use
  Company Number: 20110156

PATIENT
  Age: 43 Year
  Sex: Female
  Weight: 69.8539 kg

DRUGS (3)
  1. LIDOCAINE 1% [Concomitant]
  2. NORMAL SALINE [Concomitant]
  3. SODIUM BICARBONATE [Suspect]
     Indication: LOCAL ANAESTHESIA
     Dosage: 32 ML IN 1000 ML NORMAL SALINE SUBCUTANEOUS
     Route: 058
     Dates: start: 20101123, end: 20101123

REACTIONS (5)
  - INJECTION SITE RASH [None]
  - INFUSION SITE ERYTHEMA [None]
  - INJECTION SITE OEDEMA [None]
  - INJECTION SITE PAIN [None]
  - OFF LABEL USE [None]
